FAERS Safety Report 4960123-5 (Version None)
Quarter: 2006Q1

REPORT INFORMATION
  Report Type: 
  Country: None (occurrence: None)
  Receive Date: 20060328
  Receipt Date: 20060316
  Transmission Date: 20060701
  Serious: Yes (Other)
  Sender: FDA-Public Use
  Company Number: 2006037513

PATIENT
  Sex: Female

DRUGS (11)
  1. DILANTIN [Suspect]
     Indication: CONVULSION
  2. LIPITOR [Suspect]
     Indication: ILL-DEFINED DISORDER
     Dosage: 40 MG (40 MG, IN 1 D)
  3. XALATAN [Suspect]
     Indication: ILL-DEFINED DISORDER
  4. LEXAPRO [Suspect]
     Indication: DEPRESSION
     Dates: start: 20060301
  5. VALIUM [Concomitant]
  6. DYADIZE (HYDROCHLOROTHIAZIDE, TRIAMTERENE) [Concomitant]
  7. THYROID TAB [Concomitant]
  8. METOPROLOL  (METOPROLOL) [Concomitant]
  9. KLOR-CON [Concomitant]
  10. ASPIRIN                     (ACETYLSALCYLIC ACID) [Concomitant]
  11. TRUSOPT [Concomitant]

REACTIONS (6)
  - ABDOMINAL PAIN UPPER [None]
  - CARDIAC OPERATION [None]
  - DEPRESSION [None]
  - DRUG INEFFECTIVE [None]
  - GINGIVAL SWELLING [None]
  - WEIGHT DECREASED [None]
